FAERS Safety Report 8564747-8 (Version None)
Quarter: 2012Q3

REPORT INFORMATION
  Report Type: 
  Country: None (occurrence: None)
  Receive Date: 20120723
  Receipt Date: 20120712
  Transmission Date: 20120928
  Serious: Yes (Hospitalization)
  Sender: FDA-Public Use
  Company Number: AUR-APL-2012-01492

PATIENT
  Age: 59 Year
  Sex: Male

DRUGS (9)
  1. TORSEMIDE [Suspect]
     Indication: PRODUCT USED FOR UNKNOWN INDICATION
  2. SPIRONOLACTONE [Suspect]
     Indication: PRODUCT USED FOR UNKNOWN INDICATION
     Dates: start: 20110505, end: 20110509
  3. BLINDED THERAPY [Suspect]
     Indication: TYPE 2 DIABETES MELLITUS
     Dates: start: 20110325, end: 20110708
  4. SAXAGLIPTIN (SAXAGLIPTIN) [Suspect]
     Indication: TYPE 2 DIABETES MELLITUS
     Dates: start: 20110325
  5. FUROSEMIDE [Suspect]
     Indication: PRODUCT USED FOR UNKNOWN INDICATION
  6. EZETIMIBE [Concomitant]
  7. CARVEDILOL [Suspect]
     Indication: PRODUCT USED FOR UNKNOWN INDICATION
  8. PLACEBO [Suspect]
     Indication: TYPE 2 DIABETES MELLITUS
     Dates: start: 20110325
  9. ASPIRIN [Concomitant]

REACTIONS (9)
  - HYPOVOLAEMIA [None]
  - CONDITION AGGRAVATED [None]
  - RENAL FAILURE ACUTE [None]
  - IRRITABLE BOWEL SYNDROME [None]
  - INFECTION [None]
  - HYPOTENSION [None]
  - HEPATIC STEATOSIS [None]
  - VISION BLURRED [None]
  - AORTIC VALVE SCLEROSIS [None]
